FAERS Safety Report 24328314 (Version 3)
Quarter: 2024Q4

REPORT INFORMATION
  Report Type: Spontaneous
  Country: DE (occurrence: DE)
  Receive Date: 20240917
  Receipt Date: 20241107
  Transmission Date: 20250115
  Serious: Yes (Hospitalization, Other)
  Sender: PFIZER
  Company Number: DE-SAMSUNG BIOEPIS-SB-2024-24612

PATIENT
  Age: 76 Year
  Sex: Male
  Weight: 81 kg

DRUGS (17)
  1. LEUCOVORIN CALCIUM [Suspect]
     Active Substance: LEUCOVORIN CALCIUM
     Indication: Oesophageal adenocarcinoma
     Dosage: 200 MG/M2, IV, D1/D15/D29 AND D43 PRE-AND POST OP
     Route: 042
     Dates: start: 20240318
  2. LEUCOVORIN CALCIUM [Suspect]
     Active Substance: LEUCOVORIN CALCIUM
     Indication: HER2 positive gastric cancer
     Dosage: 275 MG
     Dates: start: 20240318
  3. TRASTUZUMAB [Suspect]
     Active Substance: TRASTUZUMAB
     Indication: Oesophageal adenocarcinoma
     Dosage: 8 MG/KG D1
     Dates: start: 20240318
  4. TRASTUZUMAB [Suspect]
     Active Substance: TRASTUZUMAB
     Dosage: 6MG/KG IV D22/D43 PRE AND POST OP, AFTERWARDS 6MG/KG IV D1 Q3W. DOSE GIVEN BEFORE EVENT 558 MG
  5. TRASTUZUMAB [Suspect]
     Active Substance: TRASTUZUMAB
     Dosage: 668 MG
     Dates: start: 20240819
  6. PEMBROLIZUMAB [Suspect]
     Active Substance: PEMBROLIZUMAB
     Indication: Oesophageal adenocarcinoma
     Dosage: 200 MG FLAT DOS IV D1/D22/D43 PRE AND POST OP AFTERWARDS D1Q3W
     Route: 042
     Dates: start: 20240318, end: 20240819
  7. PEMBROLIZUMAB [Suspect]
     Active Substance: PEMBROLIZUMAB
     Indication: HER2 positive gastric cancer
  8. FLUOROURACIL [Suspect]
     Active Substance: FLUOROURACIL
     Indication: Oesophageal adenocarcinoma
     Dosage: 2600 MG/M2, IV, D1/D15/D29 AND D43 PRE- AND POST OP
     Route: 042
     Dates: start: 20240318
  9. FLUOROURACIL [Suspect]
     Active Substance: FLUOROURACIL
     Indication: HER2 positive gastric cancer
     Dosage: 3800 MG
     Route: 042
     Dates: start: 20240318
  10. DOCETAXEL [Suspect]
     Active Substance: DOCETAXEL
     Indication: Oesophageal adenocarcinoma
     Dosage: 50 MG/M2, IV, D1/D15/D29 AND D43 PRE- AND POST OP
     Route: 042
     Dates: start: 20240318
  11. DOCETAXEL [Suspect]
     Active Substance: DOCETAXEL
     Indication: HER2 positive gastric cancer
     Dosage: 50 MG/M2, IV, D1/D15/D29 AND D43 PRE- AND POST OP
     Route: 042
     Dates: start: 20240318
  12. DOCETAXEL [Suspect]
     Active Substance: DOCETAXEL
     Dosage: 50 MG/M2, IV, D1/D15/D29 AND D43 PRE- AND POST OP
     Route: 042
     Dates: start: 20240820
  13. DOCETAXEL [Suspect]
     Active Substance: DOCETAXEL
     Dosage: 74 MG ( DOSE GIVEN BEFORE EVENT ONSET)
     Route: 042
  14. OXALIPLATIN [Suspect]
     Active Substance: OXALIPLATIN
     Indication: Oesophageal adenocarcinoma
     Dosage: 85 MG/M2, IV, D1/D15/D29 AND D43 PRE- AND POST OP
     Route: 042
     Dates: start: 20240318
  15. OXALIPLATIN [Suspect]
     Active Substance: OXALIPLATIN
     Indication: HER2 positive gastric cancer
     Dosage: 120 MG
     Dates: start: 20240318
  16. OXALIPLATIN [Suspect]
     Active Substance: OXALIPLATIN
     Dosage: DOSE GIVEN BEFORE ONSET OF EVENT WAS 125 MG;
     Route: 042
  17. ONTRUZANT [Suspect]
     Active Substance: TRASTUZUMAB-DTTB
     Indication: HER2 positive gastric cancer
     Dosage: 483 MG, CYCLIC (D1: 8 MG/KG, IV; 6 MG/KG IV D22/D43 PRE-AND POST OP, AFTERWARDS 6 MG/KG IV D1/ Q3W)
     Route: 042
     Dates: start: 20240318

REACTIONS (5)
  - Immune-mediated myocarditis [Recovered/Resolved]
  - Acute myocardial infarction [Recovered/Resolved]
  - Urinary tract infection [Recovered/Resolved]
  - Coronary artery disease [Unknown]
  - Off label use [Unknown]

NARRATIVE: CASE EVENT DATE: 20240805
